FAERS Safety Report 6379181-9 (Version None)
Quarter: 2009Q3

REPORT INFORMATION
  Report Type: 
  Country: None (occurrence: None)
  Receive Date: 20090923
  Receipt Date: 20090923
  Transmission Date: 20100115
  Serious: Yes (Other)
  Sender: FDA-Public Use
  Company Number: None

PATIENT
  Age: 35 Year
  Sex: Female
  Weight: 58.0604 kg

DRUGS (1)
  1. YAZ [Suspect]
     Indication: CONTRACEPTION
     Dosage: 1 EVERY DAY PO
     Route: 048
     Dates: start: 20090405, end: 20090705

REACTIONS (7)
  - ABDOMINAL DISCOMFORT [None]
  - ABDOMINAL DISTENSION [None]
  - ANXIETY [None]
  - HYPOMENORRHOEA [None]
  - IRRITABILITY [None]
  - MOOD SWINGS [None]
  - VAGINAL HAEMORRHAGE [None]
